FAERS Safety Report 6208310-2 (Version None)
Quarter: 2009Q2

REPORT INFORMATION
  Report Type: 
  Country: None (occurrence: None)
  Receive Date: 20090529
  Receipt Date: 20090521
  Transmission Date: 20091009
  Serious: Yes (Hospitalization)
  Sender: FDA-Public Use
  Company Number: FR-JNJFOC-20090504858

PATIENT
  Age: 70 Year
  Sex: Female

DRUGS (5)
  1. OFLOCET [Suspect]
     Indication: HAEMATURIA
     Route: 048
  2. FLUINDIONE [Interacting]
     Indication: ATRIAL FIBRILLATION
     Route: 048
  3. CORDARONE [Concomitant]
     Route: 065
  4. HEMIGOXINE [Concomitant]
     Route: 065
  5. ELISOR [Concomitant]
     Route: 065

REACTIONS (6)
  - DRUG INTERACTION [None]
  - HAEMATURIA [None]
  - HYPOPROTHROMBINAEMIA [None]
  - METRORRHAGIA [None]
  - RECTAL HAEMORRHAGE [None]
  - RENAL HAEMATOMA [None]
